FAERS Safety Report 4794511-7 (Version None)
Quarter: 2005Q4

REPORT INFORMATION
  Report Type: 
  Country: None (occurrence: None)
  Receive Date: 20051011
  Receipt Date: 20050926
  Transmission Date: 20060501
  Serious: Yes (Hospitalization)
  Sender: FDA-Public Use
  Company Number: GB-GILEAD-2005-0008738

PATIENT
  Age: 41 Year
  Sex: Male

DRUGS (7)
  1. VIREAD [Suspect]
     Indication: HIV INFECTION
     Dates: start: 20031101, end: 20040801
  2. ZERIT [Suspect]
     Indication: HIV INFECTION
     Route: 048
     Dates: start: 19981201, end: 20031101
  3. VIDEX [Suspect]
     Indication: HIV INFECTION
     Route: 048
     Dates: start: 20031101
  4. NEVIRAPINE [Suspect]
     Indication: HIV INFECTION
     Dates: start: 19981201, end: 20031101
  5. LOPINAVIR [Suspect]
     Indication: HIV INFECTION
     Dates: start: 20031101
  6. RITONAVIR [Suspect]
     Indication: HIV INFECTION
     Dates: start: 20031101
  7. REYATAZ [Concomitant]
     Indication: HIV INFECTION
     Dates: start: 20040801

REACTIONS (4)
  - DRUG RESISTANCE [None]
  - NAUSEA [None]
  - PNEUMOCYSTIS JIROVECI PNEUMONIA [None]
  - VIRAL LOAD INCREASED [None]
